FAERS Safety Report 5763992-4 (Version None)
Quarter: 2008Q2

REPORT INFORMATION
  Report Type: 
  Country: None (occurrence: None)
  Receive Date: 20080606
  Receipt Date: 20080606
  Transmission Date: 20081010
  Serious: Yes (Other)
  Sender: FDA-Public Use
  Company Number: None

PATIENT
  Sex: Female

DRUGS (3)
  1. ZADITOR [Suspect]
     Indication: CONJUNCTIVITIS ALLERGIC
     Dosage: ONCE GTT BID EYES
     Dates: start: 20080510, end: 20080527
  2. ALAWAY [Suspect]
     Indication: HYPERSENSITIVITY
     Dosage: ONCE GTT BID EYES
     Dates: start: 20080527, end: 20080604
  3. PATANOL [Concomitant]

REACTIONS (1)
  - HEADACHE [None]
